FAERS Safety Report 16756618 (Version 2)
Quarter: 2019Q3

REPORT INFORMATION
  Report Type: Spontaneous
  Country: BR (occurrence: BR)
  Receive Date: 20190829
  Receipt Date: 20190919
  Transmission Date: 20191005
  Serious: No
  Sender: FDA-Public Use
  Company Number: BR-GLAXOSMITHKLINE-BR2019AMR155507

PATIENT
  Age: 72 Year
  Sex: Male

DRUGS (1)
  1. COMBODART [Suspect]
     Active Substance: DUTASTERIDE\TAMSULOSIN
     Indication: PROSTATE INFECTION
     Dosage: UNK, QD

REACTIONS (2)
  - Blood glucose increased [Recovered/Resolved]
  - Prescription drug used without a prescription [Unknown]
